FAERS Safety Report 12908875 (Version 1)
Quarter: 2016Q4

REPORT INFORMATION
  Report Type: Spontaneous
  Country: US (occurrence: US)
  Receive Date: 20161103
  Receipt Date: 20161103
  Transmission Date: 20170207
  Serious: No
  Sender: FDA-Public Use
  Company Number: US-JNJFOC-20161022069

PATIENT
  Sex: Female

DRUGS (2)
  1. PEPCID AC MAXIMUM STRENGTH [Suspect]
     Active Substance: FAMOTIDINE
     Indication: GASTRIC DISORDER
     Route: 048
  2. PEPCID AC MAXIMUM STRENGTH [Suspect]
     Active Substance: FAMOTIDINE
     Route: 048

REACTIONS (1)
  - Blood glucose increased [Not Recovered/Not Resolved]
